FAERS Safety Report 5714702-8 (Version None)
Quarter: 2008Q2

REPORT INFORMATION
  Report Type: 
  Country: None (occurrence: None)
  Receive Date: 20080423
  Receipt Date: 20080414
  Transmission Date: 20081010
  Serious: Yes (Other)
  Sender: FDA-Public Use
  Company Number: US-MERCK-0705USA05328

PATIENT
  Age: 73 Year
  Sex: Female

DRUGS (5)
  1. FOSAMAX [Suspect]
     Indication: OSTEOPOROSIS
     Route: 048
     Dates: start: 20020101, end: 20051201
  2. LEXAPRO [Concomitant]
     Indication: ANXIETY
     Route: 065
     Dates: start: 19980101
  3. LEXAPRO [Concomitant]
     Indication: DEPRESSION
     Route: 065
     Dates: start: 19980101
  4. CLONAZEPAM [Concomitant]
     Indication: ANXIETY
     Route: 065
     Dates: start: 19980101
  5. CLONAZEPAM [Concomitant]
     Indication: DEPRESSION
     Route: 065
     Dates: start: 19980101

REACTIONS (11)
  - ABSCESS [None]
  - BLOOD COUNT ABNORMAL [None]
  - BREAST CANCER [None]
  - CEREBROVASCULAR ACCIDENT [None]
  - INJURY [None]
  - ORAL INFECTION [None]
  - ORAL PAIN [None]
  - PAIN IN JAW [None]
  - PANCYTOPENIA [None]
  - SUBDURAL HAEMATOMA [None]
  - TOOTH LOSS [None]
